FAERS Safety Report 11846096 (Version 1)
Quarter: 2015Q4

REPORT INFORMATION
  Report Type: Spontaneous
  Country: US (occurrence: US)
  Receive Date: 20151217
  Receipt Date: 20151217
  Transmission Date: 20160305
  Serious: No
  Sender: FDA-Public Use
  Company Number: ALCN2015US007627

PATIENT
  Age: 60 Year
  Sex: Female

DRUGS (3)
  1. ILEVRO [Suspect]
     Active Substance: NEPAFENAC
     Indication: LASER THERAPY
     Dosage: 1 GTT, QD
     Route: 047
     Dates: start: 20151202, end: 20151208
  2. LISINOPRIL. [Concomitant]
     Active Substance: LISINOPRIL
     Indication: BLOOD PRESSURE MEASUREMENT
     Dosage: 5 MG, BID
  3. DUREZOL [Suspect]
     Active Substance: DIFLUPREDNATE
     Indication: LASER THERAPY
     Dosage: 1 GTT, BID
     Route: 047
     Dates: start: 20151202, end: 20151208

REACTIONS (2)
  - Palpitations [Recovered/Resolved]
  - Blood pressure increased [Recovered/Resolved]

NARRATIVE: CASE EVENT DATE: 20151204
